FAERS Safety Report 6945181-0 (Version None)
Quarter: 2010Q3

REPORT INFORMATION
  Report Type: 
  Country: None (occurrence: None)
  Receive Date: 20100827
  Receipt Date: 20100514
  Transmission Date: 20110219
  Serious: No
  Sender: FDA-Public Use
  Company Number: US-KINGPHARMUSA00001-K201000595

PATIENT
  Age: 84 Year
  Sex: Female
  Weight: 72.562 kg

DRUGS (2)
  1. FLECTOR [Suspect]
     Indication: PAIN IN EXTREMITY
     Dosage: 1 PATCH, QHS FOR 12 HOURS
     Route: 061
     Dates: start: 20100510, end: 20100513
  2. ASPIRIN [Concomitant]
     Dosage: UNK

REACTIONS (2)
  - APPLICATION SITE HAEMATOMA [None]
  - APPLICATION SITE PAIN [None]
